FAERS Safety Report 23989736 (Version 4)
Quarter: 2024Q3

REPORT INFORMATION
  Report Type: Spontaneous
  Country: JP (occurrence: JP)
  Receive Date: 20240619
  Receipt Date: 20240829
  Transmission Date: 20241017
  Serious: Yes (Hospitalization, Other)
  Sender: VIFOR
  Company Number: JP-KISSEI-PT20240197_P_1

PATIENT
  Age: 50 Year
  Sex: Female

DRUGS (29)
  1. VELPHORO [Suspect]
     Active Substance: SUCROFERRIC OXYHYDROXIDE
     Indication: Hyperphosphataemia
     Dosage: GRANULATED POWDER
     Route: 048
     Dates: start: 20231226, end: 20240725
  2. PEROSPIRONE HYDROCHLORIDE [Concomitant]
     Active Substance: PEROSPIRONE HYDROCHLORIDE
     Route: 065
  3. PAXIL CR [Concomitant]
     Active Substance: PAROXETINE HYDROCHLORIDE
     Route: 065
  4. DAYVIGO [Concomitant]
     Active Substance: LEMBOREXANT
     Route: 065
  5. NEUROTROPIN [Concomitant]
     Active Substance: NEUROTROPIN
     Route: 065
  6. METHYLCOBALAMIN [Concomitant]
     Active Substance: METHYLCOBALAMIN
     Route: 065
  7. AMITRIPTYLINE [Concomitant]
     Active Substance: AMITRIPTYLINE
     Route: 065
  8. WARFARIN [Concomitant]
     Active Substance: WARFARIN
     Route: 065
  9. FEBUXOSTAT [Concomitant]
     Active Substance: FEBUXOSTAT
     Route: 065
  10. CALCIUM POLYSTYRENE SULFONATE [Concomitant]
     Active Substance: CALCIUM POLYSTYRENE SULFONATE
     Dosage: POWDER MEDICINE
     Route: 065
  11. AMEZINIUM METILSULFATE [Concomitant]
     Active Substance: AMEZINIUM METILSULFATE
     Route: 065
  12. FOSRENOL [Concomitant]
     Active Substance: LANTHANUM CARBONATE
     Route: 065
  13. CALTAN OD [Concomitant]
     Route: 065
  14. BIXALOMER [Concomitant]
     Active Substance: BIXALOMER
     Route: 065
  15. VONOPRAZAN FUMARATE [Concomitant]
     Active Substance: VONOPRAZAN FUMARATE
     Route: 065
  16. CRESTOR [Concomitant]
     Active Substance: ROSUVASTATIN CALCIUM
     Route: 065
  17. CALONAL [Concomitant]
     Active Substance: ACETAMINOPHEN
     Route: 065
  18. FLUNITRAZEPAM [Concomitant]
     Active Substance: FLUNITRAZEPAM
     Route: 065
  19. ETIZOLAM [Concomitant]
     Active Substance: ETIZOLAM
     Route: 065
  20. LEVOTHYROXINE [Concomitant]
     Active Substance: LEVOTHYROXINE\LEVOTHYROXINE SODIUM
     Route: 065
  21. REBAMIPIDE [Concomitant]
     Active Substance: REBAMIPIDE
     Route: 065
  22. ATARAX [Concomitant]
     Active Substance: HYDROXYZINE HYDROCHLORIDE
     Route: 065
  23. ASPIRIN [Concomitant]
     Active Substance: ASPIRIN
     Dosage: ENTERIC COATING DRUG
     Route: 065
  24. SALIGREN [Concomitant]
     Route: 065
  25. KETOPROFEN [Concomitant]
     Active Substance: KETOPROFEN
     Dosage: TAPE
     Route: 065
  26. ALLELOCK [Concomitant]
     Active Substance: OLOPATADINE HYDROCHLORIDE
     Route: 065
  27. PURSENNID [SENNA ALEXANDRINA LEAF] [Concomitant]
     Route: 065
  28. LOXOPROFEN SODIUM [Concomitant]
     Active Substance: LOXOPROFEN SODIUM
     Route: 065
  29. IRON SUCROSE [Concomitant]
     Active Substance: IRON SUCROSE
     Route: 065

REACTIONS (3)
  - Gamma-glutamyltransferase increased [Recovering/Resolving]
  - Faeces discoloured [Recovered/Resolved]
  - Shunt occlusion [Recovered/Resolved]

NARRATIVE: CASE EVENT DATE: 20231227
